FAERS Safety Report 25927553 (Version 1)
Quarter: 2025Q4

REPORT INFORMATION
  Report Type: Report from Study
  Country: US (occurrence: US)
  Receive Date: 20251015
  Receipt Date: 20251015
  Transmission Date: 20260117
  Serious: Yes (Hospitalization)
  Sender: ABBVIE
  Company Number: US-ABBVIE-6503032

PATIENT
  Age: 72 Year
  Sex: Female

DRUGS (1)
  1. VYALEV [Suspect]
     Active Substance: FOSCARBIDOPA\FOSLEVODOPA
     Indication: Parkinson^s disease
     Route: 058
     Dates: start: 20250430, end: 20250901

REACTIONS (2)
  - Injection site infection [Recovered/Resolved]
  - Injection site nodule [Unknown]

NARRATIVE: CASE EVENT DATE: 20250101
